FAERS Safety Report 5255772-3 (Version None)
Quarter: 2007Q1

REPORT INFORMATION
  Report Type: 
  Country: None (occurrence: None)
  Receive Date: 20070305
  Receipt Date: 20070222
  Transmission Date: 20070707
  Serious: Yes (Other)
  Sender: FDA-Public Use
  Company Number: FR-PFIZER INC-2007015414

PATIENT
  Sex: Male

DRUGS (14)
  1. LYRICA [Suspect]
  2. NEURONTIN [Suspect]
     Dates: start: 20060101, end: 20070201
  3. GLUCOPHAGE [Concomitant]
  4. DIAMICRON [Concomitant]
  5. IRBESARTAN [Concomitant]
  6. TAHOR [Concomitant]
  7. ESCITALOPRAM [Concomitant]
  8. TROSPIUM CHLORIDE [Concomitant]
  9. AVLOCARDYL [Concomitant]
  10. ROPINIROLE HCL [Concomitant]
  11. ACETAMINOPHEN W/ PROPOXYPHENE HCL [Concomitant]
  12. ACETAMINOPHEN [Concomitant]
  13. MORPHINE SULFATE [Concomitant]
  14. ALPRAZOLAM [Concomitant]

REACTIONS (5)
  - DIZZINESS [None]
  - MOOD ALTERED [None]
  - NAUSEA [None]
  - PAIN [None]
  - WEIGHT INCREASED [None]
